FAERS Safety Report 7884238-7 (Version None)
Quarter: 2011Q4

REPORT INFORMATION
  Report Type: 
  Country: None (occurrence: None)
  Receive Date: 20111102
  Receipt Date: 20111027
  Transmission Date: 20120403
  Serious: No
  Sender: FDA-Public Use
  Company Number: US-PFIZER INC-2011263197

PATIENT
  Sex: Male
  Weight: 83.9 kg

DRUGS (2)
  1. TAMSULOSIN [Concomitant]
     Dosage: UNK, 1X/DAY
  2. TOVIAZ [Suspect]
     Indication: HYPERTONIC BLADDER
     Dosage: 4 MG, 1X/DAY
     Route: 048
     Dates: start: 20111017

REACTIONS (1)
  - DRY MOUTH [None]
